FAERS Safety Report 16821486 (Version 1)
Quarter: 2019Q3

REPORT INFORMATION
  Report Type: Spontaneous
  Country: DE (occurrence: DE)
  Receive Date: 20190918
  Receipt Date: 20190918
  Transmission Date: 20191005
  Serious: Yes (Hospitalization, Other)
  Sender: FDA-Public Use
  Company Number: DE-PFIZER INC-2019393018

PATIENT
  Sex: Male

DRUGS (1)
  1. TOFACITINIB CITRATE [Suspect]
     Active Substance: TOFACITINIB CITRATE
     Dosage: UNK
     Dates: start: 201712

REACTIONS (7)
  - Chronic obstructive pulmonary disease [Unknown]
  - Myocardial infarction [Unknown]
  - Joint swelling [Unknown]
  - Diabetes mellitus inadequate control [Unknown]
  - Arthritis bacterial [Unknown]
  - Peripheral swelling [Unknown]
  - Pain in extremity [Unknown]
